FAERS Safety Report 7998522-X (Version None)
Quarter: 2011Q4

REPORT INFORMATION
  Report Type: 
  Country: None (occurrence: None)
  Receive Date: 20111221
  Receipt Date: 20111215
  Transmission Date: 20120403
  Serious: Yes (Death, Other)
  Sender: FDA-Public Use
  Company Number: IT-CELGENEUS-083-C5013-11083177

PATIENT
  Sex: Female
  Weight: 85 kg

DRUGS (4)
  1. LENALIDOMIDE [Suspect]
     Indication: MULTIPLE MYELOMA
     Dosage: 10 MILLIGRAM
     Route: 048
     Dates: start: 20070225, end: 20071217
  2. PREDNISONE [Suspect]
     Indication: MULTIPLE MYELOMA
     Dosage: 126 MILLIGRAM
     Route: 048
     Dates: start: 20070225, end: 20071019
  3. LENALIDOMIDE [Suspect]
     Indication: MULTIPLE MYELOMA
     Route: 048
  4. MELPHALAN HYDROCHLORIDE [Suspect]
     Indication: MULTIPLE MYELOMA
     Dosage: 12 MILLIGRAM
     Route: 048
     Dates: start: 20070225, end: 20071019

REACTIONS (2)
  - KAPOSI'S SARCOMA [None]
  - MULTIPLE MYELOMA [None]
